FAERS Safety Report 13053636 (Version 31)
Quarter: 2021Q3

REPORT INFORMATION
  Report Type: Other
  Country: GB (occurrence: GB)
  Receive Date: 20161222
  Receipt Date: 20210913
  Transmission Date: 20211014
  Serious: Yes (Death, Other)
  Sender: FDA-Public Use
  Company Number: GB-ROCHE-1710894

PATIENT
  Age: 58 Year
  Sex: Female

DRUGS (50)
  1. TRASTUZUMAB. [Suspect]
     Active Substance: TRASTUZUMAB
     Dosage: DOSE MODIFIED
     Route: 042
     Dates: start: 20150601, end: 20151101
  2. PERTUZUMAB. [Suspect]
     Active Substance: PERTUZUMAB
     Dosage: TARGETED THERAPY
     Route: 041
  3. DOCETAXEL. [Suspect]
     Active Substance: DOCETAXEL
     Indication: BREAST CANCER METASTATIC
     Dosage: DOSE DISCONTINUED
     Route: 042
     Dates: start: 20150629, end: 20150720
  4. CAPECITABINE. [Suspect]
     Active Substance: CAPECITABINE
     Route: 048
  5. NERATINIB [Suspect]
     Active Substance: NERATINIB
     Indication: HER2 POSITIVE BREAST CANCER
     Route: 048
     Dates: start: 20170901, end: 20180314
  6. IRRADIATED RED BLOOD CELLS?LEUKOCYTES REDUCED [Concomitant]
     Active Substance: HUMAN RED BLOOD CELL
     Dosage: 2 UNIT
     Route: 042
     Dates: start: 20180526, end: 20180526
  7. MUPIROCIN. [Concomitant]
     Active Substance: MUPIROCIN
     Route: 061
     Dates: start: 20160620, end: 20160624
  8. TRASTUZUMAB. [Suspect]
     Active Substance: TRASTUZUMAB
     Dosage: DOSE REDUCED.
     Route: 042
  9. TRASTUZUMAB. [Suspect]
     Active Substance: TRASTUZUMAB
     Route: 042
     Dates: start: 20160215, end: 20160215
  10. DOCETAXEL. [Suspect]
     Active Substance: DOCETAXEL
     Indication: HER2 POSITIVE BREAST CANCER
     Dosage: DOSE MODIFIED
     Route: 042
     Dates: start: 20150602, end: 20150602
  11. CAPECITABINE. [Suspect]
     Active Substance: CAPECITABINE
     Route: 048
  12. DOMPERIDONE [Concomitant]
     Active Substance: DOMPERIDONE
     Route: 048
     Dates: start: 20160406, end: 20160421
  13. FILGRASTIM [Concomitant]
     Active Substance: FILGRASTIM
     Route: 058
     Dates: start: 20150725, end: 20150730
  14. SANDO?K [Concomitant]
     Indication: NUTRITIONAL SUPPLEMENTATION
     Dosage: 2 TABLETS EVERY DAY
     Route: 048
     Dates: start: 20150828, end: 20150830
  15. TRASTUZUMAB. [Suspect]
     Active Substance: TRASTUZUMAB
     Indication: BREAST CANCER METASTATIC
     Dosage: LOADING DOSE
     Route: 041
     Dates: start: 20150601, end: 20150601
  16. ERIBULIN MESYLATE [Suspect]
     Active Substance: ERIBULIN MESYLATE
     Indication: HER2 POSITIVE BREAST CANCER
     Route: 042
     Dates: start: 20160411
  17. NERATINIB [Suspect]
     Active Substance: NERATINIB
     Route: 048
     Dates: start: 20180223, end: 20180402
  18. NERATINIB [Suspect]
     Active Substance: NERATINIB
     Route: 048
  19. VINORELBINE [Suspect]
     Active Substance: VINORELBINE TARTRATE
     Indication: BREAST CANCER METASTATIC
     Route: 048
     Dates: start: 20180503, end: 20180608
  20. CIPROFLOXACIN. [Concomitant]
     Active Substance: CIPROFLOXACIN
     Route: 048
     Dates: start: 20151218, end: 20151225
  21. CIPROFLOXACIN. [Concomitant]
     Active Substance: CIPROFLOXACIN
     Route: 048
     Dates: start: 20151218, end: 20151225
  22. CO?AMOXICLAV [Concomitant]
     Active Substance: AMOXICILLIN\CLAVULANATE POTASSIUM
     Route: 048
     Dates: start: 20170222, end: 20170228
  23. GENTAMICIN. [Concomitant]
     Active Substance: GENTAMICIN
     Indication: LOWER RESPIRATORY TRACT INFECTION
     Route: 042
     Dates: start: 20170213, end: 201702
  24. MEROPENEM. [Concomitant]
     Active Substance: MEROPENEM
     Indication: LOWER RESPIRATORY TRACT INFECTION
     Route: 042
     Dates: start: 20170215, end: 20170221
  25. TRASTUZUMAB. [Suspect]
     Active Substance: TRASTUZUMAB
     Dosage: DOSE MODIFIED
     Route: 042
     Dates: start: 20150629, end: 20151102
  26. TRASTUZUMAB EMTANSINE [Suspect]
     Active Substance: ADO-TRASTUZUMAB EMTANSINE
     Indication: BREAST CANCER METASTATIC
     Route: 042
     Dates: start: 20151201, end: 20160215
  27. TRASTUZUMAB EMTANSINE [Suspect]
     Active Substance: ADO-TRASTUZUMAB EMTANSINE
     Route: 042
     Dates: start: 20151201, end: 20160215
  28. NERATINIB [Suspect]
     Active Substance: NERATINIB
     Route: 065
  29. GRANULOCYTE COLONY STIMULATING FACTOR [Concomitant]
     Active Substance: GRANULOCYTE COLONY-STIMULATING FACTOR NOS
     Dosage: 300 MICROGRAM, (QD FOR 3 DAYS STARTING ON DAY 3 AND 11) RECEIVED 300 MCG FROM 25/JUL/2015
     Route: 058
     Dates: start: 20160421, end: 20160721
  30. MUPIROCIN. [Concomitant]
     Active Substance: MUPIROCIN
     Indication: PROPHYLAXIS
     Route: 061
     Dates: start: 20160620, end: 20160624
  31. TRASTUZUMAB. [Suspect]
     Active Substance: TRASTUZUMAB
     Dosage: DOSE REDUCED
     Route: 042
     Dates: start: 20151201, end: 20151221
  32. TRASTUZUMAB. [Suspect]
     Active Substance: TRASTUZUMAB
     Dosage: DOSE MODIFIED
     Route: 042
  33. PERTUZUMAB. [Suspect]
     Active Substance: PERTUZUMAB
     Indication: BREAST CANCER METASTATIC
     Dosage: TARGETED THERAPY
     Route: 041
     Dates: start: 20150622, end: 20151102
  34. PERTUZUMAB. [Suspect]
     Active Substance: PERTUZUMAB
     Dosage: LOADING DOSE
     Route: 041
  35. TRASTUZUMAB. [Suspect]
     Active Substance: TRASTUZUMAB
     Dosage: DOSE REDUCED
     Route: 042
     Dates: start: 20151201, end: 20151221
  36. CAPECITABINE. [Suspect]
     Active Substance: CAPECITABINE
     Route: 048
  37. ERIBULIN MESYLATE [Suspect]
     Active Substance: ERIBULIN MESYLATE
     Route: 042
  38. CO?AMOXICLAV [Concomitant]
     Active Substance: AMOXICILLIN\CLAVULANATE POTASSIUM
     Indication: LOWER RESPIRATORY TRACT INFECTION
     Route: 048
     Dates: start: 20170222, end: 20170228
  39. FILGRASTIM [Concomitant]
     Active Substance: FILGRASTIM
     Dosage: EVERY DAY FOR 3 DAYS STARTING ON DAYS 3 AND 11
     Route: 058
     Dates: start: 20160421, end: 20160712
  40. FOLIC ACID. [Concomitant]
     Active Substance: FOLIC ACID
     Indication: BLOOD FOLATE DECREASED
     Route: 048
     Dates: start: 20150828, end: 201708
  41. TAZOCIN [Concomitant]
     Active Substance: PIPERACILLIN SODIUM\TAZOBACTAM SODIUM
     Indication: LOWER RESPIRATORY TRACT INFECTION
     Dosage: UNK
     Route: 042
     Dates: start: 20170213, end: 20170215
  42. TRASTUZUMAB EMTANSINE [Suspect]
     Active Substance: ADO-TRASTUZUMAB EMTANSINE
     Route: 042
     Dates: start: 20160215, end: 20160215
  43. CAPECITABINE. [Suspect]
     Active Substance: CAPECITABINE
     Indication: BREAST CANCER METASTATIC
     Dosage: 3000MG ONCE DAILY
     Route: 048
     Dates: start: 20170210, end: 20170728
  44. AMLODIPINE [Concomitant]
     Active Substance: AMLODIPINE BESYLATE
     Route: 048
  45. LOPERAMIDE [Concomitant]
     Active Substance: LOPERAMIDE
     Route: 048
     Dates: start: 20170901, end: 20171124
  46. PERTUZUMAB. [Suspect]
     Active Substance: PERTUZUMAB
     Dosage: 1 DF
     Route: 041
  47. DOCETAXEL. [Suspect]
     Active Substance: DOCETAXEL
     Route: 042
  48. ERIBULIN MESYLATE [Suspect]
     Active Substance: ERIBULIN MESYLATE
     Route: 042
  49. VINORELBINE [Suspect]
     Active Substance: VINORELBINE TARTRATE
     Route: 048
     Dates: start: 20180608, end: 20180810
  50. IRRADIATED RED BLOOD CELLS?LEUKOCYTES REDUCED [Concomitant]
     Active Substance: HUMAN RED BLOOD CELL
     Dosage: 2 UNIT
     Route: 042
     Dates: start: 20160702, end: 20160702

REACTIONS (25)
  - Rash pruritic [Recovered/Resolved]
  - Weight decreased [Not Recovered/Not Resolved]
  - Decreased appetite [Recovered/Resolved]
  - Dyspepsia [Recovered/Resolved]
  - Neuropathy peripheral [Unknown]
  - Tremor [Recovered/Resolved]
  - Folate deficiency [Recovered/Resolved]
  - Nausea [Recovered/Resolved]
  - Fatigue [Recovered/Resolved]
  - Diarrhoea [Recovered/Resolved]
  - Cough [Recovered/Resolved]
  - Neutropenia [Not Recovered/Not Resolved]
  - Pancytopenia [Not Recovered/Not Resolved]
  - Palpitations [Unknown]
  - Lethargy [Recovered/Resolved]
  - Thrombocytopenia [Recovered/Resolved]
  - Mucosal inflammation [Recovered/Resolved]
  - Hyperchlorhydria [Recovered/Resolved]
  - Alopecia [Not Recovered/Not Resolved]
  - Odynophagia [Not Recovered/Not Resolved]
  - Colitis [Not Recovered/Not Resolved]
  - Throat irritation [Not Recovered/Not Resolved]
  - Pyrexia [Recovered/Resolved]
  - Dysphonia [Recovering/Resolving]
  - Decreased appetite [Recovered/Resolved]

NARRATIVE: CASE EVENT DATE: 20150717
